FAERS Safety Report 9101319 (Version 2)
Quarter: 2013Q1

REPORT INFORMATION
  Report Type: Spontaneous
  Country: US (occurrence: US)
  Receive Date: 20130215
  Receipt Date: 20130301
  Transmission Date: 20140127
  Serious: Yes (Other)
  Sender: FDA-Public Use
  Company Number: US-TEVA-386510USA

PATIENT
  Age: 28 Year
  Sex: Female
  Weight: 74.91 kg

DRUGS (4)
  1. PLAN B ONE-STEP [Suspect]
     Indication: POST COITAL CONTRACEPTION
     Dosage: 1.5 MILLIGRAM DAILY;
     Route: 048
     Dates: start: 20130202, end: 20130202
  2. XANAX [Concomitant]
     Indication: PANIC ATTACK
  3. TRAZODONE [Concomitant]
     Indication: SLEEP DISORDER
  4. ZOLOFT [Concomitant]
     Indication: BIPOLAR DISORDER

REACTIONS (4)
  - Pregnancy after post coital contraception [Unknown]
  - Breast pain [Not Recovered/Not Resolved]
  - Vomiting [Not Recovered/Not Resolved]
  - Off label use [Unknown]
